FAERS Safety Report 8097640-8 (Version None)
Quarter: 2012Q1

REPORT INFORMATION
  Report Type: 
  Country: None (occurrence: None)
  Receive Date: 20120128
  Receipt Date: 20110706
  Transmission Date: 20120608
  Serious: No
  Sender: FDA-Public Use
  Company Number: US-ABBOTT-11P-163-0836527-00

PATIENT
  Age: 55 Year
  Sex: Female

DRUGS (4)
  1. HUMIRA [Suspect]
     Indication: PSORIASIS
     Dates: start: 20110622
  2. TETRACYCLINE [Concomitant]
     Indication: RASH
     Dosage: DAILY
     Dates: start: 20110622
  3. CITALOPRAM [Concomitant]
     Indication: ANXIETY
     Dosage: DAILY
  4. SIMVASTATIN [Concomitant]
     Indication: BLOOD CHOLESTEROL INCREASED
     Dosage: DAILY

REACTIONS (1)
  - ARTHRALGIA [None]
